FAERS Safety Report 5571279-8 (Version None)
Quarter: 2007Q4

REPORT INFORMATION
  Report Type: 
  Country: None (occurrence: None)
  Receive Date: 20071221
  Receipt Date: 20070703
  Transmission Date: 20080405
  Serious: No
  Sender: FDA-Public Use
  Company Number: A0648041A

PATIENT
  Age: 42 Year
  Sex: Male

DRUGS (2)
  1. FLUTICASONE PROPIONATE [Suspect]
     Indication: DRUG USE FOR UNKNOWN INDICATION
     Route: 045
     Dates: start: 20070328
  2. ALLEGRA D 24 HOUR [Concomitant]
     Route: 048
     Dates: start: 20070328

REACTIONS (2)
  - DRUG EFFECT DECREASED [None]
  - PHARMACEUTICAL PRODUCT COMPLAINT [None]
